FAERS Safety Report 13684294 (Version 1)
Quarter: 2017Q2

REPORT INFORMATION
  Report Type: Spontaneous
  Country: US (occurrence: US)
  Receive Date: 20170623
  Receipt Date: 20170623
  Transmission Date: 20170830
  Serious: No
  Sender: FDA-Public Use
  Company Number: US-ASTELLAS-2017US015203

PATIENT
  Sex: Female

DRUGS (1)
  1. VESICARE [Suspect]
     Active Substance: SOLIFENACIN SUCCINATE
     Indication: PRODUCT USED FOR UNKNOWN INDICATION
     Dosage: 10 MG, 1 DF ONCE DAILY
     Route: 048
     Dates: start: 20161223

REACTIONS (2)
  - Urinary incontinence [Recovering/Resolving]
  - Nocturia [Recovering/Resolving]
